FAERS Safety Report 22069217 (Version 1)
Quarter: 2023Q1

REPORT INFORMATION
  Report Type: Spontaneous
  Country: US (occurrence: None)
  Receive Date: 20230306
  Receipt Date: 20230306
  Transmission Date: 20230418
  Serious: Yes (Death)
  Sender: FDA-Public Use
  Company Number: None

PATIENT
  Age: 80 Year
  Sex: Female

DRUGS (2)
  1. MYCOPHENOLIC ACID [Suspect]
     Active Substance: MYCOPHENOLIC ACID
     Indication: Transplant rejection
     Dosage: FREQUENCY : TWICE A DAY;?
     Route: 048
     Dates: start: 20210518, end: 20230304
  2. TACROLIMUS [Suspect]
     Active Substance: TACROLIMUS
     Indication: Transplant rejection
     Dosage: FREQUENCY : TWICE A DAY;?
     Route: 048
     Dates: start: 20210518, end: 20230304

REACTIONS (1)
  - Death [None]

NARRATIVE: CASE EVENT DATE: 20230304
